FAERS Safety Report 15608190 (Version 1)
Quarter: 2018Q4

REPORT INFORMATION
  Report Type: Spontaneous
  Country: US (occurrence: US)
  Receive Date: 20181107
  Receipt Date: 20181107
  Transmission Date: 20190205
  Serious: Yes (Hospitalization)
  Sender: FDA-Public Use
  Company Number: None

PATIENT
  Age: 75 Year
  Sex: Male

DRUGS (1)
  1. APIXABAN [Suspect]
     Active Substance: APIXABAN
     Route: 048
     Dates: start: 20170414, end: 20171124

REACTIONS (3)
  - Electrocardiogram ST segment elevation [None]
  - Pericardial effusion [None]
  - Medical device site pain [None]

NARRATIVE: CASE EVENT DATE: 20171124
